FAERS Safety Report 18275076 (Version 1)
Quarter: 2020Q3

REPORT INFORMATION
  Report Type: Spontaneous
  Country: US (occurrence: US)
  Receive Date: 20200916
  Receipt Date: 20200916
  Transmission Date: 20201103
  Serious: No
  Sender: FDA-Public Use
  Company Number: US-PFIZER INC-2020357090

PATIENT
  Age: 65 Year
  Sex: Female

DRUGS (2)
  1. XELJANZ XR [Suspect]
     Active Substance: TOFACITINIB CITRATE
     Indication: RHEUMATOID ARTHRITIS
     Dosage: 11 MG, DAILY
     Route: 048
     Dates: start: 20200508
  2. AZASAN [Suspect]
     Active Substance: AZATHIOPRINE
     Dosage: UNK

REACTIONS (2)
  - Vomiting [Unknown]
  - Product use issue [Unknown]

NARRATIVE: CASE EVENT DATE: 2020
